FAERS Safety Report 8490173-6 (Version None)
Quarter: 2012Q3

REPORT INFORMATION
  Report Type: 
  Country: None (occurrence: None)
  Receive Date: 20120705
  Receipt Date: 20120626
  Transmission Date: 20120928
  Serious: Yes (Hospitalization)
  Sender: FDA-Public Use
  Company Number: US-MILLENNIUM PHARMACEUTICALS, INC.-2012-03646

PATIENT
  Sex: Male

DRUGS (1)
  1. VELCADE [Suspect]
     Indication: AMYLOIDOSIS
     Dosage: 2.6 MG, CYCLIC
     Route: 042
     Dates: start: 20120312, end: 20120322

REACTIONS (5)
  - FATIGUE [None]
  - ASTHENIA [None]
  - DIZZINESS [None]
  - NEUROPATHY PERIPHERAL [None]
  - DIARRHOEA [None]
